FAERS Safety Report 5027098-4 (Version None)
Quarter: 2006Q2

REPORT INFORMATION
  Report Type: 
  Country: None (occurrence: None)
  Receive Date: 20060609
  Receipt Date: 20060529
  Transmission Date: 20061013
  Serious: Yes (Hospitalization)
  Sender: FDA-Public Use
  Company Number: GXKR2006US03027

PATIENT
  Age: 50 Year
  Sex: Female

DRUGS (3)
  1. NITROFURANTOIN [Suspect]
     Indication: PROPHYLAXIS
     Dosage: 100 MG, QD
  2. ESTRADIOL (ESTRADIOL) VAGINAL CREAM [Concomitant]
  3. NICOTINE (NICOTINE) LOZENGE [Concomitant]

REACTIONS (13)
  - BLOOD PRESSURE INCREASED [None]
  - BURNING SENSATION [None]
  - DIZZINESS [None]
  - ELECTROCARDIOGRAM Q WAVES [None]
  - HYPOTENSION [None]
  - INFLUENZA LIKE ILLNESS [None]
  - LUNG DISORDER [None]
  - NAUSEA [None]
  - OESOPHAGITIS [None]
  - PALLOR [None]
  - PARAESTHESIA [None]
  - PNEUMONIA [None]
  - VOMITING [None]
